FAERS Safety Report 5924998-5 (Version None)
Quarter: 2008Q3

REPORT INFORMATION
  Report Type: 
  Country: None (occurrence: None)
  Receive Date: 20080909
  Receipt Date: 20080617
  Transmission Date: 20090109
  Serious: Yes (Hospitalization, Disabling, Other)
  Sender: FDA-Public Use
  Company Number: 163-20785-08040648

PATIENT
  Age: 67 Year
  Sex: Male

DRUGS (8)
  1. THALOMID [Suspect]
     Indication: MULTIPLE MYELOMA
     Dosage: 200 MG, 1 IN 1 D, ORAL
     Route: 048
     Dates: start: 20080322, end: 20080407
  2. ASPIRIN [Concomitant]
  3. ALBUTEROL [Concomitant]
  4. ATIVAN [Concomitant]
  5. MAGNESIUM OXIDE (MAGNESIUM OXIDE) [Concomitant]
  6. POTASSIUM (POTASSIUM) [Concomitant]
  7. MULTIVITAMIN (MULTI-VIT) [Concomitant]
  8. OXYCODONE HCL [Concomitant]

REACTIONS (6)
  - DEEP VEIN THROMBOSIS [None]
  - DIABETES MELLITUS [None]
  - DYSPNOEA [None]
  - OEDEMA PERIPHERAL [None]
  - PULMONARY EMBOLISM [None]
  - TENDERNESS [None]
